FAERS Safety Report 23162845 (Version 1)
Quarter: 2023Q4

REPORT INFORMATION
  Report Type: Spontaneous
  Country: ES (occurrence: ES)
  Receive Date: 20231109
  Receipt Date: 20231109
  Transmission Date: 20240110
  Serious: Yes (Other)
  Sender: FDA-Public Use
  Company Number: ES-drreddys-LIT/SPN/23/0183084

PATIENT
  Age: 73 Year
  Sex: Male

DRUGS (1)
  1. SUNITINIB [Suspect]
     Active Substance: SUNITINIB
     Indication: Renal cancer

REACTIONS (6)
  - Renal cancer [Unknown]
  - Disease progression [Unknown]
  - Diabetes mellitus [Unknown]
  - Diabetic ketoacidosis [Unknown]
  - Chorea [Unknown]
  - Drug ineffective [Unknown]
